FAERS Safety Report 7262590-3 (Version None)
Quarter: 2011Q1

REPORT INFORMATION
  Report Type: 
  Country: None (occurrence: None)
  Receive Date: 20110130
  Receipt Date: 20101006
  Transmission Date: 20110831
  Serious: No
  Sender: FDA-Public Use
  Company Number: US-ABBOTT-10P-163-0670485-00

PATIENT
  Age: 67 Year
  Sex: Male

DRUGS (9)
  1. ASA [Concomitant]
     Indication: PROPHYLAXIS
  2. METOPROLOL [Concomitant]
     Indication: BLOOD PRESSURE
  3. HUMIRA [Suspect]
     Indication: CROHN'S DISEASE
     Dates: start: 20100701, end: 20100901
  4. NIASPAN [Concomitant]
     Indication: BLOOD CHOLESTEROL INCREASED
  5. ASACOL [Concomitant]
     Indication: CROHN'S DISEASE
     Dosage: 3 PILLS, THREE TIMES DAY
  6. AMLODIPINE [Concomitant]
     Indication: HYPERTENSION
  7. HYDROCHLOROTHIAZIDE [Concomitant]
     Indication: BLOOD PRESSURE
  8. FLIORIC ACID [Concomitant]
     Indication: COLITIS
  9. SIMVASTATIN [Concomitant]
     Indication: BLOOD CHOLESTEROL

REACTIONS (1)
  - DRUG INEFFECTIVE [None]
